FAERS Safety Report 16061771 (Version 1)
Quarter: 2019Q1

REPORT INFORMATION
  Report Type: Spontaneous
  Country: US (occurrence: US)
  Receive Date: 20190312
  Receipt Date: 20190312
  Transmission Date: 20190418
  Serious: No
  Sender: FDA-Public Use
  Company Number: US-PFIZER INC-2019103133

PATIENT
  Age: 62 Year
  Sex: Female
  Weight: 69.85 kg

DRUGS (3)
  1. SERTRALINE HCL [Suspect]
     Active Substance: SERTRALINE HYDROCHLORIDE
     Indication: ADRENAL INSUFFICIENCY
     Dosage: 1 DF, 1X/DAY
  2. NATURE-THROID [Concomitant]
     Active Substance: THYROID, PORCINE
     Indication: THYROID DISORDER
     Dosage: 90 MG, DAILY (EVERYDAY)
  3. ARMOUR THYROID [Concomitant]
     Active Substance: THYROID, PORCINE
     Indication: THYROID DISORDER
     Dosage: 60 MG, 1X/DAY

REACTIONS (7)
  - Product use in unapproved indication [Unknown]
  - Swelling [Unknown]
  - Nightmare [Unknown]
  - Insomnia [Unknown]
  - Anxiety [Unknown]
  - Chest discomfort [Unknown]
  - Hypersensitivity [Unknown]
